FAERS Safety Report 20720637 (Version 1)
Quarter: 2022Q2

REPORT INFORMATION
  Report Type: Spontaneous
  Country: JP (occurrence: JP)
  Receive Date: 20220418
  Receipt Date: 20220418
  Transmission Date: 20220721
  Serious: Yes (Hospitalization, Other)
  Sender: FDA-Public Use
  Company Number: JP-PFIZER INC-202200285166

PATIENT
  Age: 76 Year
  Sex: Male
  Weight: 56.2 kg

DRUGS (3)
  1. PACLITAXEL [Suspect]
     Active Substance: PACLITAXEL
     Indication: Gastric cancer
     Dosage: UNK (TOTAL 7 CYCLIC)
     Dates: start: 201905, end: 201912
  2. RAMUCIRUMAB [Suspect]
     Active Substance: RAMUCIRUMAB
     Indication: Gastric cancer
     Dosage: UNK (TOTAL 7 CYCLIC)
     Dates: start: 201905, end: 201912
  3. ASPIRIN [Concomitant]
     Active Substance: ASPIRIN
     Indication: Antiplatelet therapy
     Dosage: 100 MG, DAILY
     Route: 048

REACTIONS (6)
  - Bladder tamponade [Recovered/Resolved]
  - Urinary bladder haematoma [Recovered/Resolved]
  - Haematuria [Recovered/Resolved]
  - Epistaxis [Recovered/Resolved]
  - Anaemia [Recovered/Resolved]
  - Off label use [Unknown]
